FAERS Safety Report 19024717 (Version 1)
Quarter: 2021Q1

REPORT INFORMATION
  Report Type: Spontaneous
  Country: AU (occurrence: AU)
  Receive Date: 20210318
  Receipt Date: 20210318
  Transmission Date: 20210420
  Serious: Yes (Other)
  Sender: FDA-Public Use
  Company Number: AU-AMGEN-AUSSP2021040261

PATIENT
  Age: 44 Year
  Sex: Female

DRUGS (3)
  1. TREMELIMUMAB. [Concomitant]
     Active Substance: TREMELIMUMAB
     Indication: BREAST CANCER METASTATIC
     Dosage: UNK
  2. DURVALUMAB. [Concomitant]
     Active Substance: DURVALUMAB
     Indication: BREAST CANCER METASTATIC
     Dosage: UNK
  3. TRASTUZUMAB. [Suspect]
     Active Substance: TRASTUZUMAB
     Indication: BREAST CANCER METASTATIC
     Dosage: UNK
     Route: 065

REACTIONS (1)
  - Cytomegalovirus colitis [Recovering/Resolving]
